FAERS Safety Report 6964471-9 (Version None)
Quarter: 2010Q3

REPORT INFORMATION
  Report Type: 
  Country: None (occurrence: None)
  Receive Date: 20100903
  Receipt Date: 20100823
  Transmission Date: 20110219
  Serious: Yes (Other)
  Sender: FDA-Public Use
  Company Number: GB-PFIZER INC-2010106212

PATIENT
  Age: 47 Year
  Sex: Female

DRUGS (1)
  1. CHAMPIX [Suspect]
     Indication: SMOKING CESSATION THERAPY
     Dosage: 1 G, 2X/DAY
     Route: 048
     Dates: start: 20100611, end: 20100708

REACTIONS (5)
  - BREAST ENLARGEMENT [None]
  - BREAST TENDERNESS [None]
  - DEPRESSION [None]
  - MENSTRUAL DISORDER [None]
  - NAUSEA [None]
